FAERS Safety Report 13415220 (Version 1)
Quarter: 2017Q2

REPORT INFORMATION
  Report Type: Spontaneous
  Country: US (occurrence: US)
  Receive Date: 20170407
  Receipt Date: 20170407
  Transmission Date: 20170830
  Serious: Yes (Other)
  Sender: FDA-Public Use
  Company Number: None

PATIENT
  Age: 17 Year
  Sex: Male
  Weight: 101.2 kg

DRUGS (5)
  1. DYMISTA [Suspect]
     Active Substance: AZELASTINE HYDROCHLORIDE\FLUTICASONE PROPIONATE
     Indication: HYPERSENSITIVITY
     Dosage: OTHER STRENGTH:MCG;QUANTITY:1 SPRAY(S);OTHER ROUTE:NOSTRIL?
     Route: 045
     Dates: start: 20170328, end: 20170331
  2. TYLENOL [Concomitant]
     Active Substance: ACETAMINOPHEN
  3. ZYRTEC [Concomitant]
     Active Substance: CETIRIZINE HYDROCHLORIDE
  4. DYMISTA [Suspect]
     Active Substance: AZELASTINE HYDROCHLORIDE\FLUTICASONE PROPIONATE
     Indication: SINUSITIS
     Dosage: OTHER STRENGTH:MCG;QUANTITY:1 SPRAY(S);OTHER ROUTE:NOSTRIL?
     Route: 045
     Dates: start: 20170328, end: 20170331
  5. MOTRIN [Concomitant]
     Active Substance: IBUPROFEN

REACTIONS (2)
  - Headache [None]
  - Nausea [None]

NARRATIVE: CASE EVENT DATE: 20170329
